FAERS Safety Report 16934026 (Version 1)
Quarter: 2019Q4

REPORT INFORMATION
  Report Type: Spontaneous
  Country: US (occurrence: US)
  Receive Date: 20190826
  Receipt Date: 20190826
  Transmission Date: 20200122
  Serious: Yes (Hospitalization)
  Sender: FDA-Public Use
  Company Number: None

PATIENT
  Age: 68 Year
  Sex: Male
  Weight: 78.3 kg

DRUGS (18)
  1. OPTUNE/TTFIEIDS [Concomitant]
  2. NIFEDIPINE ER (PROCARDIA XL) [Concomitant]
  3. GLUCAGON. [Concomitant]
     Active Substance: GLUCAGON
  4. IPRATROPIUM (ATROVENT HFA) [Concomitant]
  5. AVELUMAB [Suspect]
     Active Substance: AVELUMAB
     Indication: GLIOBLASTOMA
     Route: 042
     Dates: start: 20190619, end: 20190814
  6. ELAVIL [Concomitant]
     Active Substance: AMITRIPTYLINE HYDROCHLORIDE
  7. RAMELTEON (ROZEREM) [Concomitant]
  8. DECADRON [Concomitant]
     Active Substance: DEXAMETHASONE
  9. VIMPAT [Concomitant]
     Active Substance: LACOSAMIDE
  10. ALBUTEROL SULFATE HFA [Concomitant]
     Active Substance: ALBUTEROL SULFATE
  11. DEXTROSE (GLUTOSE) [Concomitant]
  12. FLUTICASONE FUROATE-VILANTEROL (BREO ELLIPTA) [Concomitant]
  13. INSULIN LISPRO (HUMALOG) [Concomitant]
  14. BEVACIZUMAB. [Concomitant]
     Active Substance: BEVACIZUMAB
  15. LEVETIRACETAM. [Concomitant]
     Active Substance: LEVETIRACETAM
  16. FLUTICASONE PROPIONATE (FLONASE) [Concomitant]
  17. FAMOTIDINE(PEPCID) [Concomitant]
  18. TYLENOL [Concomitant]
     Active Substance: ACETAMINOPHEN

REACTIONS (8)
  - Brain midline shift [None]
  - Dysarthria [None]
  - Fall [None]
  - Cerebrovascular accident [None]
  - Hemiparesis [None]
  - Aphasia [None]
  - Condition aggravated [None]
  - Brain oedema [None]

NARRATIVE: CASE EVENT DATE: 20190819
